FAERS Safety Report 7369957-3 (Version None)
Quarter: 2011Q1

REPORT INFORMATION
  Report Type: 
  Country: None (occurrence: None)
  Receive Date: 20110323
  Receipt Date: 20110309
  Transmission Date: 20110831
  Serious: Yes (Hospitalization)
  Sender: FDA-Public Use
  Company Number: JP-AMGEN-JPNCT2011015355

PATIENT
  Age: 77 Year
  Sex: Male
  Weight: 66 kg

DRUGS (6)
  1. PANITUMUMAB [Suspect]
     Dosage: 6 MG/KG, Q2WK
     Route: 041
     Dates: start: 20110301
  2. CALCIUM LEVOFOLINATE [Concomitant]
     Indication: COLORECTAL CANCER
     Route: 041
     Dates: start: 20100907, end: 20101116
  3. IRINOTECAN HYDROCHLORIDE [Concomitant]
     Indication: COLORECTAL CANCER
     Route: 041
     Dates: start: 20100907, end: 20101116
  4. FLUOROURACIL [Concomitant]
     Indication: COLORECTAL CANCER
     Route: 041
     Dates: start: 20100907, end: 20101116
  5. PANITUMUMAB [Suspect]
     Indication: COLORECTAL CANCER
     Dosage: 6 MG/KG, Q2WK
     Route: 041
     Dates: start: 20100720, end: 20101116
  6. PANITUMUMAB [Suspect]
     Dosage: 6 MG/KG, Q2WK
     Route: 041
     Dates: start: 20101221, end: 20110208

REACTIONS (2)
  - CONVULSION [None]
  - DERMATITIS ACNEIFORM [None]
